FAERS Safety Report 15321581 (Version 2)
Quarter: 2018Q3

REPORT INFORMATION
  Report Type: Spontaneous
  Country: GB (occurrence: GB)
  Receive Date: 20180827
  Receipt Date: 20180925
  Transmission Date: 20181010
  Serious: Yes (Hospitalization, Other)
  Sender: FDA-Public Use
  Company Number: GB-GLAXOSMITHKLINE-GB2018151246

PATIENT
  Age: 71 Year
  Sex: Female

DRUGS (4)
  1. MIDODRINE TABLET (MIDODRINE) [Concomitant]
     Active Substance: MIDODRINE
     Indication: PRODUCT USED FOR UNKNOWN INDICATION
     Dosage: 2.5 MG, UNK
     Route: 065
  2. AMOXICILLINE [Concomitant]
     Active Substance: AMOXICILLIN
     Indication: LOWER RESPIRATORY TRACT INFECTION
     Dosage: 3 G, QD
     Route: 065
     Dates: start: 20180713, end: 20180720
  3. ACICLOVIR [Suspect]
     Active Substance: ACYCLOVIR
     Indication: ORAL DISORDER
     Dosage: 1200 MG, QD
     Route: 048
     Dates: start: 20180804, end: 20180806
  4. CALCICHEW D3 [Concomitant]
     Active Substance: CALCIUM\CHOLECALCIFEROL
     Indication: PRODUCT USED FOR UNKNOWN INDICATION
     Dosage: UNK
     Route: 065

REACTIONS (1)
  - Pancytopenia [Recovering/Resolving]

NARRATIVE: CASE EVENT DATE: 20180806
